FAERS Safety Report 5498685-4 (Version None)
Quarter: 2007Q4

REPORT INFORMATION
  Report Type: 
  Country: None (occurrence: None)
  Receive Date: 20071024
  Receipt Date: 20071024
  Transmission Date: 20080405
  Serious: Yes (Life-Threatening, Hospitalization)
  Sender: FDA-Public Use
  Company Number: None

PATIENT
  Age: 47 Year
  Sex: Male

DRUGS (2)
  1. IBUPROFEN [Suspect]
     Indication: ROTATOR CUFF SYNDROME
     Dosage: 600MG TID PO
     Route: 048
     Dates: start: 19991014, end: 20071012
  2. CLOPIDOGREL [Suspect]
     Dosage: 75MG EVERY DAY PO
     Route: 048
     Dates: start: 20031201, end: 20071012

REACTIONS (3)
  - DUODENAL ULCER [None]
  - GASTRIC HAEMORRHAGE [None]
  - GASTRITIS EROSIVE [None]
